FAERS Safety Report 9942041 (Version 1)
Quarter: 2014Q1

REPORT INFORMATION
  Report Type: Report from Study
  Country: US (occurrence: US)
  Receive Date: 20140303
  Receipt Date: 20140303
  Transmission Date: 20141002
  Serious: No
  Sender: FDA-Public Use
  Company Number: US-ABBVIE-13P-163-1041142-00

PATIENT
  Age: 50 Year
  Sex: Female
  Weight: 80.81 kg

DRUGS (2)
  1. HUMIRA [Suspect]
     Indication: RHEUMATOID ARTHRITIS
     Route: 058
     Dates: end: 20130120
  2. AMOXICILLIN (NON-ABBOTT) [Concomitant]
     Indication: PHARYNGITIS STREPTOCOCCAL
     Dates: start: 20130121

REACTIONS (1)
  - Pharyngitis streptococcal [Not Recovered/Not Resolved]
